FAERS Safety Report 8050760-6 (Version None)
Quarter: 2012Q1

REPORT INFORMATION
  Report Type: 
  Country: None (occurrence: None)
  Receive Date: 20120117
  Receipt Date: 20120117
  Transmission Date: 20120608
  Serious: Yes (Other)
  Sender: FDA-Public Use
  Company Number: None

PATIENT
  Age: 47 Year
  Sex: Female
  Weight: 61.234 kg

DRUGS (1)
  1. GLIMEPIRIDE [Suspect]
     Indication: BLOOD GLUCOSE INCREASED
     Dosage: 1 TABLET
     Route: 048
     Dates: start: 20111219, end: 20120112

REACTIONS (2)
  - ABDOMINAL PAIN [None]
  - MUSCLE STRAIN [None]
